FAERS Safety Report 9688076 (Version 1)
Quarter: 2013Q4

REPORT INFORMATION
  Report Type: Spontaneous
  Country: US (occurrence: US)
  Receive Date: 20131114
  Receipt Date: 20131114
  Transmission Date: 20140711
  Serious: No
  Sender: FDA-Public Use
  Company Number: US-TEVA-442894USA

PATIENT
  Sex: Female

DRUGS (1)
  1. TREANDA [Suspect]

REACTIONS (1)
  - Herpes zoster [Unknown]
